FAERS Safety Report 15144615 (Version 1)
Quarter: 2018Q3

REPORT INFORMATION
  Report Type: Spontaneous
  Country: FR (occurrence: FR)
  Receive Date: 20180713
  Receipt Date: 20180713
  Transmission Date: 20181010
  Serious: Yes (Hospitalization)
  Sender: FDA-Public Use
  Company Number: FR-ELI_LILLY_AND_COMPANY-FR201807004232

PATIENT
  Age: 54 Year
  Sex: Female
  Weight: 83.5 kg

DRUGS (1)
  1. ZYPADHERA [Suspect]
     Active Substance: OLANZAPINE PAMOATE
     Indication: SCHIZOPHRENIA
     Dosage: 1 DF, UNKNOWN
     Route: 030
     Dates: start: 20180514, end: 20180514

REACTIONS (5)
  - Injection site pain [Recovered/Resolved]
  - Fatigue [Recovered/Resolved]
  - Injection site abscess [Recovering/Resolving]
  - Injection site haematoma [Recovered/Resolved]
  - Chills [Recovered/Resolved]

NARRATIVE: CASE EVENT DATE: 20180517
